FAERS Safety Report 24213694 (Version 1)
Quarter: 2024Q3

REPORT INFORMATION
  Report Type: Spontaneous
  Country: US (occurrence: None)
  Receive Date: 20240814
  Receipt Date: 20240814
  Transmission Date: 20241017
  Serious: Yes (Other)
  Sender: Public
  Company Number: None

PATIENT
  Age: 36 Year
  Sex: Female
  Weight: 67.5 kg

DRUGS (4)
  1. QULIPTA [Suspect]
     Active Substance: ATOGEPANT
     Indication: Migraine
     Dosage: 1 TABLET DALY ORAL
     Route: 048
  2. Ib profen [Concomitant]
  3. EXCEDRIN [Concomitant]
     Active Substance: ACETAMINOPHEN\ASPIRIN\CAFFEINE
  4. Magnesium glycine [Concomitant]

REACTIONS (3)
  - Abdominal pain [None]
  - Illness [None]
  - Amenorrhoea [None]

NARRATIVE: CASE EVENT DATE: 20240803
